FAERS Safety Report 4393286-3 (Version None)
Quarter: 2004Q3

REPORT INFORMATION
  Report Type: 
  Country: None (occurrence: None)
  Receive Date: 20040708
  Receipt Date: 20040628
  Transmission Date: 20050211
  Serious: Yes (Other)
  Sender: FDA-Public Use
  Company Number: JP-MERCK-0407USA00171

PATIENT
  Age: 60 Year
  Sex: Female

DRUGS (3)
  1. NORVASC [Concomitant]
     Indication: HYPERTENSION
     Route: 048
  2. LIPITOR [Concomitant]
     Indication: HYPERLIPIDAEMIA
     Route: 048
  3. COZAAR [Suspect]
     Indication: HYPERTENSION
     Route: 048

REACTIONS (2)
  - EYE OPERATION [None]
  - EYE REDNESS [None]
